FAERS Safety Report 9613617 (Version 1)
Quarter: 2013Q4

REPORT INFORMATION
  Report Type: Spontaneous
  Country: US (occurrence: US)
  Receive Date: 20131010
  Receipt Date: 20131010
  Transmission Date: 20140711
  Serious: No
  Sender: FDA-Public Use
  Company Number: US-TEVA-364743USA

PATIENT
  Sex: Female

DRUGS (1)
  1. JOLESSA TABLET 0.15/0.03MG [Suspect]
     Indication: CONTRACEPTION

REACTIONS (3)
  - Menstruation irregular [Unknown]
  - Uterine spasm [Unknown]
  - Mood swings [Unknown]
